FAERS Safety Report 24966912 (Version 2)
Quarter: 2025Q1

REPORT INFORMATION
  Report Type: Report from Study
  Country: ZA (occurrence: ZA)
  Receive Date: 20250213
  Receipt Date: 20250221
  Transmission Date: 20250408
  Serious: No
  Sender: ROCHE
  Company Number: ZA-ROCHE-10000200724

PATIENT
  Sex: Female

DRUGS (2)
  1. OCREVUS [Suspect]
     Active Substance: OCRELIZUMAB
     Indication: Multiple sclerosis
     Route: 040
     Dates: start: 20240221
  2. OCREVUS [Suspect]
     Active Substance: OCRELIZUMAB
     Route: 040

REACTIONS (3)
  - Gait disturbance [Unknown]
  - Disease progression [Unknown]
  - Drug ineffective [Unknown]
